FAERS Safety Report 11294762 (Version 2)
Quarter: 2015Q3

REPORT INFORMATION
  Report Type: Report from Study
  Country: CA (occurrence: CA)
  Receive Date: 20150723
  Receipt Date: 20150807
  Transmission Date: 20151125
  Serious: Yes (Hospitalization)
  Sender: FDA-Public Use
  Company Number: CA-ROCHE-1330264

PATIENT
  Age: 74 Year
  Sex: Female

DRUGS (9)
  1. RITUXAN [Suspect]
     Active Substance: RITUXIMAB
     Indication: RHEUMATOID ARTHRITIS
     Dosage: ON 08/AUG/2013, SHE RECEIVED LAST DOSE OF RITUXIMAB PRIOR TO EVENT.?LAST DOSE RECEIVED ON 24/JAN/201
     Route: 042
     Dates: start: 20130724
  2. PANTOPRAZOLE [Concomitant]
     Active Substance: PANTOPRAZOLE SODIUM
  3. BENADRYL [Concomitant]
     Active Substance: DIPHENHYDRAMINE HYDROCHLORIDE
     Indication: PREMEDICATION
     Route: 048
     Dates: start: 20130724
  4. TYLENOL [Concomitant]
     Active Substance: ACETAMINOPHEN
     Indication: PREMEDICATION
     Route: 048
     Dates: start: 20130724
  5. NAPROXEN. [Concomitant]
     Active Substance: NAPROXEN
  6. ALENDRONATE [Concomitant]
     Active Substance: ALENDRONATE SODIUM
  7. SOLU-MEDROL [Concomitant]
     Active Substance: METHYLPREDNISOLONE SODIUM SUCCINATE
     Indication: PREMEDICATION
     Route: 042
     Dates: start: 20130724
  8. METHOTREXATE [Concomitant]
     Active Substance: METHOTREXATE
  9. SALAZOPYRIN [Concomitant]
     Active Substance: SULFASALAZINE

REACTIONS (2)
  - Lung neoplasm malignant [Unknown]
  - Influenza [Unknown]

NARRATIVE: CASE EVENT DATE: 201409
